FAERS Safety Report 16671783 (Version 3)
Quarter: 2020Q1

REPORT INFORMATION
  Report Type: Spontaneous
  Country: US (occurrence: US)
  Receive Date: 20190806
  Receipt Date: 20200217
  Transmission Date: 20200409
  Serious: Yes (Other)
  Sender: FDA-Public Use
  Company Number: US-ELI_LILLY_AND_COMPANY-US201908001163

PATIENT
  Age: 60 Year
  Sex: Male

DRUGS (3)
  1. HUMIRA [Suspect]
     Active Substance: ADALIMUMAB
     Indication: CROHN^S DISEASE
     Dosage: 40 MG, 2/W
     Route: 058
     Dates: start: 20190117, end: 20190620
  2. HUMIRA [Suspect]
     Active Substance: ADALIMUMAB
     Indication: RHEUMATOID ARTHRITIS
     Dosage: 40 UNK, UNKNOWN
     Route: 058
     Dates: start: 20190718
  3. CYMBALTA [Suspect]
     Active Substance: DULOXETINE HYDROCHLORIDE
     Indication: PRODUCT USED FOR UNKNOWN INDICATION
     Dosage: UNK UNK, UNKNOWN
     Route: 065
     Dates: start: 20190228

REACTIONS (26)
  - Night sweats [Unknown]
  - Constipation [Not Recovered/Not Resolved]
  - Pain in extremity [Unknown]
  - Arthralgia [Unknown]
  - Decreased appetite [Unknown]
  - Vomiting [Recovering/Resolving]
  - Nasopharyngitis [Unknown]
  - Weight decreased [Recovering/Resolving]
  - Diarrhoea [Recovering/Resolving]
  - Insomnia [Not Recovered/Not Resolved]
  - Musculoskeletal pain [Unknown]
  - Nausea [Recovered/Resolved]
  - Acne [Unknown]
  - Stomatitis [Unknown]
  - Nausea [Recovering/Resolving]
  - Sinusitis [Not Recovered/Not Resolved]
  - Chills [Unknown]
  - Rectal haemorrhage [Recovering/Resolving]
  - Haematochezia [Unknown]
  - Rhinorrhoea [Not Recovered/Not Resolved]
  - Adverse food reaction [Unknown]
  - Neck pain [Unknown]
  - Abdominal pain [Unknown]
  - Fatigue [Unknown]
  - Depressed mood [Not Recovered/Not Resolved]
  - Rash [Unknown]

NARRATIVE: CASE EVENT DATE: 2019
